FAERS Safety Report 14795555 (Version 2)
Quarter: 2018Q2

REPORT INFORMATION
  Report Type: Report from Study
  Country: BE (occurrence: BE)
  Receive Date: 20180423
  Receipt Date: 20180515
  Transmission Date: 20180711
  Serious: Yes (Other)
  Sender: FDA-Public Use
  Company Number: BE-TAKEDA-2018TUS006607

PATIENT
  Sex: Female

DRUGS (1)
  1. VEDOLIZUMAB [Suspect]
     Active Substance: VEDOLIZUMAB
     Indication: CROHN^S DISEASE
     Dosage: 300 MG, UNK
     Route: 042
     Dates: start: 20180219, end: 20180416

REACTIONS (12)
  - Haematochezia [Unknown]
  - Suicidal ideation [Recovering/Resolving]
  - Bowel movement irregularity [Not Recovered/Not Resolved]
  - Diarrhoea [Recovered/Resolved]
  - Rash [Not Recovered/Not Resolved]
  - Joint swelling [Not Recovered/Not Resolved]
  - Nasopharyngitis [Unknown]
  - Depression [Recovered/Resolved]
  - Tooth discolouration [Unknown]
  - Nail discolouration [Unknown]
  - Asthenia [Unknown]
  - Mucous stools [Unknown]
